FAERS Safety Report 23572772 (Version 1)
Quarter: 2024Q1

REPORT INFORMATION
  Report Type: Report from Study
  Country: CN (occurrence: CN)
  Receive Date: 20240227
  Receipt Date: 20240227
  Transmission Date: 20240409
  Serious: Yes (Other)
  Sender: FDA-Public Use
  Company Number: CN-HUTCHMED LIMITED-HMP2024CN00371

PATIENT
  Age: 65 Year
  Sex: Male

DRUGS (1)
  1. FRUQUINTINIB [Suspect]
     Active Substance: FRUQUINTINIB
     Indication: Gastric cancer
     Dosage: 4 MILLIGRAM
     Route: 065
     Dates: start: 202305

REACTIONS (3)
  - Haematochezia [Unknown]
  - Diarrhoea [Unknown]
  - Off label use [Unknown]

NARRATIVE: CASE EVENT DATE: 20230501
